FAERS Safety Report 10202229 (Version 1)
Quarter: 2014Q2

REPORT INFORMATION
  Report Type: Spontaneous
  Country: US (occurrence: US)
  Receive Date: 20140528
  Receipt Date: 20140528
  Transmission Date: 20141212
  Serious: No
  Sender: FDA-Public Use
  Company Number: US-BRISTOL-MYERS SQUIBB COMPANY-20114591

PATIENT
  Age: 78 Year
  Sex: Female
  Weight: 72.56 kg

DRUGS (19)
  1. GLUCOPHAGE [Suspect]
     Indication: DIABETES MELLITUS
  2. GLIPIZIDE [Concomitant]
  3. HYDROCHLOROTHIAZIDE [Concomitant]
  4. ECOTRIN [Concomitant]
  5. AVANDIA [Concomitant]
  6. NIACIN [Concomitant]
  7. LIPITOR [Concomitant]
  8. AMARYL [Concomitant]
  9. ZETIA [Concomitant]
  10. COLESTID [Concomitant]
  11. ZYRTEC [Concomitant]
  12. MEVACOR [Concomitant]
  13. ZOCOR [Concomitant]
  14. PRAVACHOL [Concomitant]
  15. CLARITIN [Concomitant]
  16. METFORMIN [Concomitant]
  17. PREVACID [Concomitant]
  18. LISINOPRIL [Concomitant]
  19. ASPIRIN [Concomitant]

REACTIONS (4)
  - Palpitations [Unknown]
  - Oral pain [Unknown]
  - Swelling [Unknown]
  - Product odour abnormal [Unknown]
